FAERS Safety Report 22119754 (Version 4)
Quarter: 2023Q2

REPORT INFORMATION
  Report Type: Spontaneous
  Country: US (occurrence: US)
  Receive Date: 20230321
  Receipt Date: 20230518
  Transmission Date: 20230722
  Serious: Yes (Hospitalization, Other)
  Sender: FDA-Public Use
  Company Number: US-AMGEN-USASP2023045355

PATIENT
  Age: 71 Year
  Sex: Female
  Weight: 71 kg

DRUGS (1)
  1. REPATHA [Suspect]
     Active Substance: EVOLOCUMAB
     Indication: Hypercholesterolaemia
     Dosage: 140 MILLIGRAM, Q2WK
     Route: 065

REACTIONS (13)
  - Loss of consciousness [Unknown]
  - Tonsillectomy [Unknown]
  - Unevaluable event [Unknown]
  - Accidental exposure to product [Unknown]
  - Weight increased [Unknown]
  - Limb discomfort [Unknown]
  - Arthritis [Unknown]
  - Drug dose omission by device [Unknown]
  - Asthenia [Unknown]
  - Device difficult to use [Unknown]
  - Balance disorder [Recovering/Resolving]
  - Dysphonia [Unknown]
  - Dizziness [Unknown]

NARRATIVE: CASE EVENT DATE: 20210101
